FAERS Safety Report 7787598-0 (Version None)
Quarter: 2011Q3

REPORT INFORMATION
  Report Type: 
  Country: None (occurrence: None)
  Receive Date: 20110929
  Receipt Date: 20110921
  Transmission Date: 20111222
  Serious: Yes (Hospitalization, Other)
  Sender: FDA-Public Use
  Company Number: US-ASTRAZENECA-2011SE28607

PATIENT
  Age: 53 Year
  Sex: Female

DRUGS (6)
  1. NEXIUM [Suspect]
     Route: 048
  2. PRILOSEC [Suspect]
     Route: 048
  3. NEXIUM [Suspect]
     Route: 048
  4. PREVACID [Concomitant]
  5. ACIFEX [Concomitant]
  6. ZANTAC [Concomitant]

REACTIONS (10)
  - INTERVERTEBRAL DISC PROTRUSION [None]
  - DRUG DOSE OMISSION [None]
  - DRUG INEFFECTIVE [None]
  - BREAST CANCER [None]
  - STAPHYLOCOCCAL INFECTION [None]
  - GASTROOESOPHAGEAL REFLUX DISEASE [None]
  - THROAT IRRITATION [None]
  - CHEST DISCOMFORT [None]
  - ESCHERICHIA INFECTION [None]
  - WRONG DRUG ADMINISTERED [None]
